FAERS Safety Report 6879802-8 (Version None)
Quarter: 2010Q3

REPORT INFORMATION
  Report Type: 
  Country: None (occurrence: None)
  Receive Date: 20100728
  Receipt Date: 20100715
  Transmission Date: 20110219
  Serious: Yes (Hospitalization)
  Sender: FDA-Public Use
  Company Number: US-ELI_LILLY_AND_COMPANY-US201007004957

PATIENT
  Sex: Male

DRUGS (10)
  1. FORTEO [Suspect]
     Indication: OSTEOPOROSIS
     Dosage: 20 UG, DAILY (1/D)
  2. M.V.I. [Concomitant]
  3. VITAMIN B-12 [Concomitant]
  4. DYAZIDE [Concomitant]
     Dosage: UNK, DAILY (1/D)
  5. ASPIRIN [Concomitant]
     Dosage: 81 MG, DAILY (1/D)
  6. LEVOTHYROXINE [Concomitant]
     Dosage: 88 MG, DAILY (1/D)
  7. FAMOTIDINE [Concomitant]
     Dosage: 40 MG, 3/D
  8. FISH OIL [Concomitant]
  9. MOBIC [Concomitant]
     Indication: PAIN
     Dosage: 15 MG, DAILY (1/D)
  10. NORVASC [Concomitant]

REACTIONS (10)
  - BLOOD PRESSURE INCREASED [None]
  - CONTUSION [None]
  - HAEMATOMA [None]
  - INJURY [None]
  - MUSCULOSKELETAL CHEST PAIN [None]
  - PAIN [None]
  - PAIN IN JAW [None]
  - SKIN ATROPHY [None]
  - SKIN LACERATION [None]
  - THORACIC VERTEBRAL FRACTURE [None]
